FAERS Safety Report 5811115-5 (Version None)
Quarter: 2008Q3

REPORT INFORMATION
  Report Type: 
  Country: None (occurrence: None)
  Receive Date: 20080716
  Receipt Date: 20080707
  Transmission Date: 20090109
  Serious: Yes (Hospitalization, Other)
  Sender: FDA-Public Use
  Company Number: PHHY2008GB13512

PATIENT
  Age: 72 Year
  Sex: Male

DRUGS (4)
  1. RIVASTIGMINE TARTRATE [Suspect]
     Indication: PARKINSON'S DISEASE
     Dosage: 1.5 MG DAILY
     Dates: start: 20080219, end: 20080412
  2. QUETIAPINE FUMARATE [Concomitant]
     Indication: HALLUCINATION
     Dosage: 50 MG/DAY
     Dates: start: 20080229, end: 20080412
  3. CIPRAMIL [Concomitant]
     Indication: DEPRESSION
     Dosage: 20 MG, QD
     Dates: start: 20080115, end: 20080412
  4. MADOPAR [Concomitant]
     Indication: PARKINSON'S DISEASE
     Dosage: 1 DF, 5QD

REACTIONS (6)
  - BLOOD CREATINE PHOSPHOKINASE INCREASED [None]
  - BRADYKINESIA [None]
  - CONFUSIONAL STATE [None]
  - HYPERTONIA [None]
  - NEUROLEPTIC MALIGNANT SYNDROME [None]
  - PYREXIA [None]
